FAERS Safety Report 10200341 (Version 1)
Quarter: 2014Q2

REPORT INFORMATION
  Report Type: Spontaneous
  Country: IE (occurrence: IE)
  Receive Date: 20140527
  Receipt Date: 20140527
  Transmission Date: 20141212
  Serious: Yes (Hospitalization)
  Sender: FDA-Public Use
  Company Number: IE-AMGEN INC.-IRLSP2014038062

PATIENT
  Age: 58 Year
  Sex: Male

DRUGS (1)
  1. ARANESP [Suspect]
     Indication: RENAL FAILURE CHRONIC
     Dosage: 100 MUG, EVERY OTHER WEEK, UNK
     Route: 058
     Dates: start: 20140508

REACTIONS (1)
  - Investigation [Unknown]
